FAERS Safety Report 5757691-2 (Version None)
Quarter: 2008Q2

REPORT INFORMATION
  Report Type: 
  Country: None (occurrence: None)
  Receive Date: 20080603
  Receipt Date: 20080523
  Transmission Date: 20081010
  Serious: Yes (Other)
  Sender: FDA-Public Use
  Company Number: GB-PFIZER INC-2008044982

PATIENT
  Age: 25 Year
  Sex: Male
  Weight: 77.5 kg

DRUGS (2)
  1. CHANTIX [Suspect]
     Indication: SMOKING CESSATION THERAPY
     Route: 048
     Dates: start: 20080213, end: 20080410
  2. ACETAMINOPHEN [Concomitant]
     Route: 048

REACTIONS (5)
  - ANXIETY [None]
  - EMOTIONAL DISORDER [None]
  - SLUGGISHNESS [None]
  - SOMNOLENCE [None]
  - SUICIDAL IDEATION [None]
